FAERS Safety Report 7531919-0 (Version None)
Quarter: 2011Q2

REPORT INFORMATION
  Report Type: 
  Country: None (occurrence: None)
  Receive Date: 20110608
  Receipt Date: 20110527
  Transmission Date: 20111010
  Serious: Yes (Death)
  Sender: FDA-Public Use
  Company Number: GB-GENENTECH-319583

PATIENT
  Sex: Female
  Weight: 45 kg

DRUGS (2)
  1. RITUXIMAB [Suspect]
     Indication: RHEUMATOID ARTHRITIS
     Dosage: 1000 MG, UNK
     Route: 065
     Dates: start: 20100603
  2. AZULFIDINE [Concomitant]
     Dosage: UNK

REACTIONS (2)
  - PULMONARY FIBROSIS [None]
  - BRONCHOPNEUMONIA [None]
